FAERS Safety Report 18500372 (Version 2)
Quarter: 2021Q1

REPORT INFORMATION
  Report Type: Report from Study
  Country: US (occurrence: US)
  Receive Date: 20201113
  Receipt Date: 20210205
  Transmission Date: 20210419
  Serious: Yes (Hospitalization)
  Sender: FDA-Public Use
  Company Number: NVSC2020US289171

PATIENT
  Age: 83 Year
  Sex: Male
  Weight: 95 kg

DRUGS (21)
  1. ASA [Concomitant]
     Active Substance: ASPIRIN
     Indication: PROPHYLAXIS
     Dosage: UNK
     Route: 065
     Dates: start: 19950101
  2. NEXIUM [Concomitant]
     Active Substance: ESOMEPRAZOLE MAGNESIUM
     Indication: GASTROOESOPHAGEAL REFLUX DISEASE
     Dosage: UNK
     Route: 065
     Dates: start: 20100101
  3. ATORVASTATIN [Concomitant]
     Active Substance: ATORVASTATIN
     Indication: HYPERCHOLESTEROLAEMIA
     Dosage: UNK
     Route: 065
     Dates: start: 20110101
  4. METAMUCIL [Concomitant]
     Active Substance: PLANTAGO SEED
     Indication: CONSTIPATION
     Dosage: UNK
     Route: 065
     Dates: start: 19910101
  5. MESALAMINE. [Concomitant]
     Active Substance: MESALAMINE
     Indication: COLITIS
     Dosage: UNK
     Route: 065
     Dates: start: 20180101
  6. DICYCLOMINE [Concomitant]
     Active Substance: DICYCLOMINE HYDROCHLORIDE
     Indication: COLITIS
     Dosage: UNK
     Route: 065
     Dates: start: 20180101
  7. GABAPENTIN. [Suspect]
     Active Substance: GABAPENTIN
     Indication: NEUROPATHY PERIPHERAL
     Dosage: UNK
     Route: 065
     Dates: start: 20201024, end: 20201102
  8. EYLEA [Suspect]
     Active Substance: AFLIBERCEPT
     Indication: NEOVASCULAR AGE-RELATED MACULAR DEGENERATION
     Dosage: CODE NOT BROKEN
     Route: 031
     Dates: start: 20190320
  9. MONTELUKAST [Concomitant]
     Active Substance: MONTELUKAST SODIUM
     Indication: SEASONAL ALLERGY
     Dosage: UNK
     Route: 065
     Dates: start: 20100101
  10. PROPARACAINE [Concomitant]
     Active Substance: PROPARACAINE
     Indication: NEOVASCULAR AGE-RELATED MACULAR DEGENERATION
     Dosage: 0.5 %
     Route: 065
     Dates: start: 20190313
  11. BLINDED NO TREATMENT RECEIVED [Suspect]
     Active Substance: INVESTIGATIONAL PRODUCT
     Indication: NEOVASCULAR AGE-RELATED MACULAR DEGENERATION
     Dosage: CODE NOT BROKEN
     Route: 031
     Dates: start: 20190320
  12. NASONEX [Concomitant]
     Active Substance: MOMETASONE FUROATE
     Indication: SEASONAL ALLERGY
     Dosage: UNK
     Route: 065
     Dates: start: 20000101
  13. ASACOL [Concomitant]
     Active Substance: MESALAMINE
     Indication: DIVERTICULITIS
     Dosage: UNK
     Route: 065
     Dates: start: 19950101
  14. TROPICAMIDE. [Concomitant]
     Active Substance: TROPICAMIDE
     Indication: NEOVASCULAR AGE-RELATED MACULAR DEGENERATION
     Dosage: 1.0 %
     Route: 065
     Dates: start: 20190313
  15. AKTEN [Concomitant]
     Active Substance: LIDOCAINE HYDROCHLORIDE
     Indication: NEOVASCULAR AGE-RELATED MACULAR DEGENERATION
     Dosage: 3.5 %
     Route: 065
     Dates: start: 20190320
  16. BETADINE [Concomitant]
     Active Substance: POVIDONE-IODINE
     Indication: NEOVASCULAR AGE-RELATED MACULAR DEGENERATION
     Dosage: 5.0 %
     Route: 065
     Dates: start: 20190320
  17. BLINDED AL?86810 6 MG IN 50 ?L 120 MG/ML [Suspect]
     Active Substance: BROLUCIZUMAB
     Indication: NEOVASCULAR AGE-RELATED MACULAR DEGENERATION
     Dosage: CODE NOT BROKEN
     Route: 031
     Dates: start: 20190320
  18. VITEYES AREDS 2 [Concomitant]
     Active Substance: MINERALS\VITAMINS
     Indication: DRY AGE-RELATED MACULAR DEGENERATION
     Dosage: UNK
     Route: 065
     Dates: start: 20120730
  19. LATANOPROST. [Concomitant]
     Active Substance: LATANOPROST
     Indication: OPEN ANGLE GLAUCOMA
     Dosage: UNK
     Route: 065
     Dates: start: 20121101
  20. LISINOPRIL. [Concomitant]
     Active Substance: LISINOPRIL
     Indication: HYPERTENSION
     Dosage: UNK
     Route: 065
     Dates: start: 20201028
  21. PHENYLEPHRINE [Concomitant]
     Active Substance: PHENYLEPHRINE HYDROCHLORIDE
     Indication: NEOVASCULAR AGE-RELATED MACULAR DEGENERATION
     Dosage: 2.5 %
     Route: 065
     Dates: start: 20190313

REACTIONS (1)
  - Transient ischaemic attack [Recovered/Resolved]

NARRATIVE: CASE EVENT DATE: 20201025
